FAERS Safety Report 5072391-2 (Version None)
Quarter: 2006Q3

REPORT INFORMATION
  Report Type: 
  Country: None (occurrence: None)
  Receive Date: 20060710
  Receipt Date: 20050802
  Transmission Date: 20061208
  Serious: Yes (Other)
  Sender: FDA-Public Use
  Company Number: PROG00205002474

PATIENT
  Age: 35 Year
  Sex: Female
  Weight: 61.5 kg

DRUGS (2)
  1. PROMETRIUM [Suspect]
     Indication: PRENATAL CARE
     Dosage: 200 MILLIGRAM(S) BID VAGINAL DIALY DOSE: 400 MILLIGRAM(S)
     Route: 067
     Dates: start: 20050404, end: 20050420
  2. METFORMIN HCL [Concomitant]

REACTIONS (2)
  - ABORTION SPONTANEOUS [None]
  - INCORRECT ROUTE OF DRUG ADMINISTRATION [None]
